FAERS Safety Report 9656036 (Version 1)
Quarter: 2013Q4

REPORT INFORMATION
  Report Type: Spontaneous
  Country: US (occurrence: None)
  Receive Date: 20131029
  Receipt Date: 20131029
  Transmission Date: 20140711
  Serious: Yes (Life-Threatening, Hospitalization)
  Sender: FDA-Public Use
  Company Number: None

PATIENT
  Age: 58 Year
  Sex: Female
  Weight: 78.47 kg

DRUGS (1)
  1. GADOLINIUM [Suspect]
     Dates: start: 20131115

REACTIONS (11)
  - Anaphylactic shock [None]
  - Cardio-respiratory arrest [None]
  - Pain of skin [None]
  - Burning sensation [None]
  - Feeling cold [None]
  - Lip swelling [None]
  - Swollen tongue [None]
  - Dyspnoea [None]
  - Visual impairment [None]
  - Blood pressure systolic decreased [None]
  - Product quality issue [None]
